FAERS Safety Report 6616070-6 (Version None)
Quarter: 2010Q1

REPORT INFORMATION
  Report Type: 
  Country: None (occurrence: None)
  Receive Date: 20100305
  Receipt Date: 20100222
  Transmission Date: 20100710
  Serious: Yes (Hospitalization, Other)
  Sender: FDA-Public Use
  Company Number: PHHY2010MX01509

PATIENT
  Age: 75 Year
  Sex: Male

DRUGS (4)
  1. CO-DIOVAN [Suspect]
     Indication: HYPERTENSION
     Dosage: 1 TABLET (160/25 MG) PER DAY
     Route: 048
     Dates: start: 20070901, end: 20091227
  2. CO-DIOVAN [Suspect]
     Dosage: 1 TABLET (160/25MG) PER DAY, RESTARTED
  3. VALSARTAN [Suspect]
     Indication: HYPERTENSION
  4. LISINOPRIL [Concomitant]
     Dosage: UNK
     Route: 065
     Dates: start: 20070101

REACTIONS (6)
  - ANXIETY [None]
  - BLOOD PRESSURE INCREASED [None]
  - DIZZINESS [None]
  - HYPOTENSION [None]
  - NERVOUSNESS [None]
  - SOMNOLENCE [None]
